FAERS Safety Report 5654815-2 (Version None)
Quarter: 2008Q1

REPORT INFORMATION
  Report Type: 
  Country: None (occurrence: None)
  Receive Date: 20080307
  Receipt Date: 20070813
  Transmission Date: 20080703
  Serious: No
  Sender: FDA-Public Use
  Company Number: A0666533A

PATIENT
  Age: 54 Year
  Sex: Female

DRUGS (7)
  1. REQUIP [Suspect]
     Indication: RESTLESS LEGS SYNDROME
     Dosage: 1MG PER DAY
     Route: 048
     Dates: start: 20050101, end: 20070101
  2. POTASSIUM CHLORIDE [Concomitant]
  3. PROGESTERONE [Concomitant]
  4. LEXAPRO [Concomitant]
  5. TEMACETAM [Concomitant]
  6. FOSAMAX [Concomitant]
  7. THYROID TAB [Concomitant]

REACTIONS (1)
  - NAUSEA [None]
